FAERS Safety Report 23882531 (Version 1)
Quarter: 2024Q2

REPORT INFORMATION
  Report Type: Spontaneous
  Country: US (occurrence: US)
  Receive Date: 20240522
  Receipt Date: 20240522
  Transmission Date: 20240716
  Serious: No
  Sender: FDA-Public Use
  Company Number: US-Merck Healthcare KGaA-2024026741

PATIENT
  Age: 67 Year
  Sex: Male

DRUGS (1)
  1. SEROSTIM [Suspect]
     Active Substance: SOMATROPIN
     Indication: HIV infection
     Dosage: UNDER THE SKIN

REACTIONS (3)
  - Fatigue [Unknown]
  - Nausea [Unknown]
  - Oedema peripheral [Unknown]
